FAERS Safety Report 14653591 (Version 2)
Quarter: 2018Q1

REPORT INFORMATION
  Report Type: Spontaneous
  Country: US (occurrence: US)
  Receive Date: 20180319
  Receipt Date: 20180331
  Transmission Date: 20180509
  Serious: No
  Sender: FDA-Public Use
  Company Number: US-JNJFOC-20180309792

PATIENT

DRUGS (1)
  1. DOXIL [Suspect]
     Active Substance: DOXORUBICIN HYDROCHLORIDE
     Indication: PRODUCT USED FOR UNKNOWN INDICATION
     Route: 042

REACTIONS (3)
  - Off label use [Unknown]
  - Drug dose omission [Unknown]
  - Wrong technique in product usage process [Unknown]
